FAERS Safety Report 21281248 (Version 1)
Quarter: 2022Q3

REPORT INFORMATION
  Report Type: Spontaneous
  Country: US (occurrence: US)
  Receive Date: 20220901
  Receipt Date: 20220901
  Transmission Date: 20221026
  Serious: No
  Sender: FDA-Public Use
  Company Number: US-ALLERGAN-2130261US

PATIENT
  Sex: Female

DRUGS (1)
  1. FETZIMA [Suspect]
     Active Substance: LEVOMILNACIPRAN HYDROCHLORIDE
     Indication: Product used for unknown indication

REACTIONS (6)
  - Cognitive disorder [Unknown]
  - Influenza like illness [Unknown]
  - Fatigue [Unknown]
  - Anxiety [Unknown]
  - Therapy cessation [Unknown]
  - Inability to afford medication [Unknown]
